FAERS Safety Report 15807107 (Version 1)
Quarter: 2019Q1

REPORT INFORMATION
  Report Type: Spontaneous
  Country: US (occurrence: US)
  Receive Date: 20190103
  Receipt Date: 20190103
  Transmission Date: 20190417
  Serious: No
  Sender: FDA-Public Use
  Company Number: None

PATIENT

DRUGS (2)
  1. VALPROATE SODIUM. [Suspect]
     Active Substance: VALPROATE SODIUM
  2. LEVETIRACETAM. [Suspect]
     Active Substance: LEVETIRACETAM

REACTIONS (4)
  - Product storage error [None]
  - Product label confusion [None]
  - Product dispensing error [None]
  - Intercepted product dispensing error [None]
